FAERS Safety Report 9226097 (Version 1)
Quarter: 2013Q1

REPORT INFORMATION
  Report Type: Spontaneous
  Country: US (occurrence: None)
  Receive Date: 20120924
  Receipt Date: 20120924
  Transmission Date: 20140127
  Serious: Yes (Hospitalization)
  Sender: FDA-Public Use
  Company Number: 2012ST000551

PATIENT
  Age: 91 Year
  Sex: Male

DRUGS (1)
  1. MATULANE CAPSULES [Suspect]
     Indication: PRODUCT USED FOR UNKNOWN INDICATION
     Route: 048
     Dates: start: 20120614

REACTIONS (2)
  - Neutropenia [None]
  - Pyrexia [None]
